FAERS Safety Report 7327957-3 (Version None)
Quarter: 2011Q1

REPORT INFORMATION
  Report Type: 
  Country: None (occurrence: None)
  Receive Date: 20110223
  Receipt Date: 20110210
  Transmission Date: 20110831
  Serious: Yes (Death)
  Sender: FDA-Public Use
  Company Number: CRC-11-031

PATIENT
  Sex: Male

DRUGS (4)
  1. ACETAMINOPHEN/OXYCODONE [Suspect]
  2. EQUAGESIC [Suspect]
  3. CARISOPRODOL [Suspect]
  4. LORCET-HD [Suspect]

REACTIONS (2)
  - MULTIPLE DRUG OVERDOSE [None]
  - CARDIO-RESPIRATORY ARREST [None]
